FAERS Safety Report 16409969 (Version 1)
Quarter: 2019Q2

REPORT INFORMATION
  Report Type: Spontaneous
  Country: NL (occurrence: NL)
  Receive Date: 20190610
  Receipt Date: 20190610
  Transmission Date: 20190711
  Serious: Yes (Death, Other)
  Sender: FDA-Public Use
  Company Number: NL-MYLANLABS-2018M1057915

PATIENT
  Sex: Female

DRUGS (2)
  1. DICLOFENAC [Suspect]
     Active Substance: DICLOFENAC
     Dosage: 75 MILLIGRAM, BID (2 X PER DAG 1 TABLET)
     Route: 048
     Dates: start: 20181109
  2. DICLOFENAC [Suspect]
     Active Substance: DICLOFENAC
     Indication: HERNIA
     Dosage: 1 DF, UNK
     Route: 065

REACTIONS (1)
  - Anaphylactic reaction [Fatal]
